FAERS Safety Report 24611632 (Version 2)
Quarter: 2025Q4

REPORT INFORMATION
  Report Type: Report from Study
  Country: BR (occurrence: BR)
  Receive Date: 20241113
  Receipt Date: 20251224
  Transmission Date: 20260118
  Serious: Yes (Other)
  Sender: NOVARTIS
  Company Number: BR-002147023-NVSC2024BR171528

PATIENT
  Sex: Female

DRUGS (2)
  1. SECUKINUMAB [Suspect]
     Active Substance: SECUKINUMAB
     Indication: Psoriatic arthropathy
     Dosage: UNK
     Route: 065
  2. METHOTREXATE [Concomitant]
     Active Substance: METHOTREXATE
     Indication: Product used for unknown indication
     Dosage: UNK
     Route: 065

REACTIONS (25)
  - Psoriatic arthropathy [Unknown]
  - Autoimmune disorder [Unknown]
  - Drug dependence [Unknown]
  - Decreased immune responsiveness [Unknown]
  - Aphonia [Unknown]
  - Tonsillitis [Unknown]
  - Malaise [Unknown]
  - Memory impairment [Unknown]
  - Stress [Unknown]
  - Oropharyngeal pain [Unknown]
  - Ear pain [Unknown]
  - Fatigue [Unknown]
  - Drug resistance [Unknown]
  - Pain [Unknown]
  - Pain in extremity [Unknown]
  - Therapeutic response shortened [Unknown]
  - Toothache [Unknown]
  - Irritability [Unknown]
  - Anxiety [Unknown]
  - Psoriasis [Recovered/Resolved]
  - Gait disturbance [Recovered/Resolved]
  - Vulvovaginal pruritus [Recovered/Resolved]
  - Hypersensitivity [Recovered/Resolved]
  - Vulvovaginal discomfort [Recovered/Resolved]
  - Pruritus [Recovered/Resolved]

NARRATIVE: CASE EVENT DATE: 20240101
